FAERS Safety Report 20749722 (Version 3)
Quarter: 2022Q3

REPORT INFORMATION
  Report Type: Spontaneous
  Country: PT (occurrence: PT)
  Receive Date: 20220426
  Receipt Date: 20220927
  Transmission Date: 20221026
  Serious: Yes (Death, Hospitalization, Other)
  Sender: FDA-Public Use
  Company Number: PT-GSKCCFEMEA-Case-01402003_AE-53971

PATIENT

DRUGS (2)
  1. JEMPERLI [Suspect]
     Active Substance: DOSTARLIMAB-GXLY
     Indication: Endometrial cancer
     Dosage: UNK (500Q21D)
     Dates: start: 20211228, end: 20220303
  2. JEMPERLI [Suspect]
     Active Substance: DOSTARLIMAB-GXLY
     Dosage: (1000 MG Q24D)UNK
     Dates: start: 20220412

REACTIONS (16)
  - Pericardial effusion [Fatal]
  - Cardiac tamponade [Fatal]
  - Metastases to central nervous system [Fatal]
  - Encephalopathy [Recovered/Resolved]
  - Psychomotor retardation [Recovered/Resolved]
  - Ataxia [Recovered/Resolved]
  - Psoriasis [Not Recovered/Not Resolved]
  - Rash [Unknown]
  - Skin exfoliation [Unknown]
  - Skin discolouration [Unknown]
  - Skin lesion [Not Recovered/Not Resolved]
  - Lymphadenopathy [Unknown]
  - DNA mismatch repair protein gene mutation [Unknown]
  - Tumour marker decreased [Not Recovered/Not Resolved]
  - Pruritus [Unknown]
  - Pigmentation disorder [Unknown]

NARRATIVE: CASE EVENT DATE: 20211228
